FAERS Safety Report 9378053 (Version 2)
Quarter: 2013Q3

REPORT INFORMATION
  Report Type: Spontaneous
  Country: US (occurrence: US)
  Receive Date: 20130701
  Receipt Date: 20130805
  Transmission Date: 20140515
  Serious: Yes (Death)
  Sender: FDA-Public Use
  Company Number: US-GILEAD-2013-0077936

PATIENT
  Age: 18 Year
  Sex: Female

DRUGS (1)
  1. CAYSTON [Suspect]
     Indication: PSEUDOMONAS INFECTION
     Dosage: 75 MG, UNK
     Route: 055
     Dates: start: 20100723

REACTIONS (2)
  - Cystic fibrosis [Fatal]
  - Pneumonia [Fatal]
